FAERS Safety Report 24757770 (Version 1)
Quarter: 2024Q4

REPORT INFORMATION
  Report Type: Other
  Country: DE (occurrence: DE)
  Receive Date: 20241220
  Receipt Date: 20241220
  Transmission Date: 20250114
  Serious: Yes (Hospitalization)
  Sender: MACLEODS
  Company Number: DE-002147023-NVSC2023DE166084

PATIENT

DRUGS (12)
  1. CELECOXIB [Suspect]
     Active Substance: CELECOXIB
     Indication: Axial spondyloarthritis
     Dosage: 25 MG, QW (1 DAY/WEEK)
     Route: 065
     Dates: start: 20200201
  2. CELECOXIB [Suspect]
     Active Substance: CELECOXIB
     Dosage: 400 MG
     Route: 065
     Dates: start: 20180628
  3. CELECOXIB [Suspect]
     Active Substance: CELECOXIB
     Dosage: 100 MG
     Route: 065
     Dates: start: 20200201
  4. CELECOXIB [Suspect]
     Active Substance: CELECOXIB
     Dosage: 50 MG
     Route: 065
     Dates: start: 20200201
  5. CELECOXIB [Suspect]
     Active Substance: CELECOXIB
     Dosage: 200 MG
     Route: 065
     Dates: start: 20180628
  6. CELECOXIB [Suspect]
     Active Substance: CELECOXIB
     Dosage: 25 MG
     Route: 065
     Dates: start: 20200201
  7. COSENTYX [Suspect]
     Active Substance: SECUKINUMAB
     Indication: Axial spondyloarthritis
     Dosage: 150 MG, QMO
     Route: 065
     Dates: start: 20181206
  8. CHOLECALCIFEROL [Concomitant]
     Active Substance: CHOLECALCIFEROL
     Indication: Product used for unknown indication
     Dosage: 20 IU
     Route: 065
  9. METOPROLOL [Concomitant]
     Active Substance: METOPROLOL
     Indication: Product used for unknown indication
     Dosage: 47.5 MG
     Route: 065
  10. SULFASALAZINE [Concomitant]
     Active Substance: SULFASALAZINE
     Indication: Product used for unknown indication
     Dosage: 2000 MG
     Route: 065
     Dates: start: 20150901
  11. SULFASALAZINE [Concomitant]
     Active Substance: SULFASALAZINE
     Dosage: 500 MG
     Route: 065
     Dates: start: 20150901
  12. SULFASALAZINE [Concomitant]
     Active Substance: SULFASALAZINE
     Dosage: 500 MG
     Route: 065
     Dates: start: 20150901, end: 20190502

REACTIONS (6)
  - Horner^s syndrome [Unknown]
  - Hypoaesthesia [Unknown]
  - Pupillary disorder [Unknown]
  - Toothache [Recovering/Resolving]
  - Tooth abscess [Unknown]
  - Upper respiratory tract infection [Unknown]

NARRATIVE: CASE EVENT DATE: 20220919
